FAERS Safety Report 21805869 (Version 11)
Quarter: 2024Q3

REPORT INFORMATION
  Report Type: Report from Study
  Country: CA (occurrence: CA)
  Receive Date: 20230102
  Receipt Date: 20240906
  Transmission Date: 20241016
  Serious: Yes (Hospitalization, Other)
  Sender: TAKEDA
  Company Number: CA-TAKEDA-2021TUS064698

PATIENT
  Age: 74 Year
  Sex: Female
  Weight: 60 kg

DRUGS (48)
  1. HUMAN IMMUNOGLOBULIN G [Suspect]
     Active Substance: HUMAN IMMUNOGLOBULIN G
     Indication: Chronic inflammatory demyelinating polyradiculoneuropathy
     Dosage: 15 GRAM, 1/WEEK
     Route: 065
     Dates: start: 20211018
  2. HUMAN IMMUNOGLOBULIN G [Suspect]
     Active Substance: HUMAN IMMUNOGLOBULIN G
     Dosage: 15 GRAM, 1/WEEK
     Route: 065
  3. HUMAN IMMUNOGLOBULIN G [Suspect]
     Active Substance: HUMAN IMMUNOGLOBULIN G
     Dosage: 30 GRAM, 1/WEEK
     Route: 058
  4. HUMAN IMMUNOGLOBULIN G [Suspect]
     Active Substance: HUMAN IMMUNOGLOBULIN G
     Dosage: UNK
     Route: 050
  5. HUMAN IMMUNOGLOBULIN G [Suspect]
     Active Substance: HUMAN IMMUNOGLOBULIN G
     Dosage: 15 GRAM, 1/WEEK
     Route: 058
     Dates: start: 202111
  6. HUMAN IMMUNOGLOBULIN G [Suspect]
     Active Substance: HUMAN IMMUNOGLOBULIN G
     Dosage: 15 GRAM, 2/WEEK
     Route: 058
  7. HUMAN IMMUNOGLOBULIN G [Suspect]
     Active Substance: HUMAN IMMUNOGLOBULIN G
     Dosage: 1 GRAM
     Route: 065
  8. HUMAN IMMUNOGLOBULIN G [Suspect]
     Active Substance: HUMAN IMMUNOGLOBULIN G
     Dosage: 4 GRAM
     Route: 065
  9. HUMAN IMMUNOGLOBULIN G [Suspect]
     Active Substance: HUMAN IMMUNOGLOBULIN G
     Dosage: 10 GRAM
     Route: 065
  10. HUMAN IMMUNOGLOBULIN G [Suspect]
     Active Substance: HUMAN IMMUNOGLOBULIN G
     Dosage: 15 GRAM, 1/WEEK
     Route: 050
  11. HUMAN IMMUNOGLOBULIN G [Suspect]
     Active Substance: HUMAN IMMUNOGLOBULIN G
     Dosage: UNK UNK, 2/WEEK
     Route: 058
  12. HUMAN IMMUNOGLOBULIN G [Suspect]
     Active Substance: HUMAN IMMUNOGLOBULIN G
     Dosage: 30 GRAM, 1/WEEK
     Route: 050
  13. GABAPENTIN [Suspect]
     Active Substance: GABAPENTIN
     Indication: Product used for unknown indication
     Dosage: 300 MILLIGRAM, QD
     Route: 048
  14. MESTINON [Suspect]
     Active Substance: PYRIDOSTIGMINE BROMIDE
     Indication: Product used for unknown indication
     Dosage: 60 MILLIGRAM
     Route: 048
     Dates: start: 202406
  15. RAMIPRIL [Concomitant]
     Active Substance: RAMIPRIL
     Dosage: 2.5 MILLIGRAM, QD
     Route: 065
  16. METFORMIN [Concomitant]
     Active Substance: METFORMIN HYDROCHLORIDE
     Dosage: UNK UNK, QD
     Route: 065
  17. GLICLAZIDE [Concomitant]
     Active Substance: GLICLAZIDE
     Dosage: 30 MILLIGRAM
     Route: 065
  18. HYDROXYCHLOROQUINE [Concomitant]
     Active Substance: HYDROXYCHLOROQUINE
     Dosage: 200 MILLIGRAM, BID
     Route: 065
  19. HYDROXYCHLOROQUINE [Concomitant]
     Active Substance: HYDROXYCHLOROQUINE
     Dosage: 400 MILLIGRAM, QD
     Route: 048
  20. HYDROXYCHLOROQUINE [Concomitant]
     Active Substance: HYDROXYCHLOROQUINE
     Dosage: 300 MILLIGRAM, QD
     Route: 048
  21. RABEPRAZOLE [Concomitant]
     Active Substance: RABEPRAZOLE
     Dosage: 20 MILLIGRAM, QD
     Route: 065
  22. CALCIUM\MAGNESIUM [Concomitant]
     Active Substance: CALCIUM\MAGNESIUM
     Dosage: UNK UNK, QD
     Route: 065
  23. CALCIUM\MAGNESIUM [Concomitant]
     Active Substance: CALCIUM\MAGNESIUM
     Dosage: 333 MILLIGRAM, QD
     Route: 065
  24. CALCIUM\MAGNESIUM [Concomitant]
     Active Substance: CALCIUM\MAGNESIUM
     Dosage: 167 MILLIGRAM, QD
     Route: 065
  25. CALCIUM\MAGNESIUM [Concomitant]
     Active Substance: CALCIUM\MAGNESIUM
     Dosage: 17 MILLIGRAM, QD
     Route: 065
  26. CALCIUM\MAGNESIUM [Concomitant]
     Active Substance: CALCIUM\MAGNESIUM
     Dosage: UNK UNK, QD
     Route: 065
  27. CANNABIS SATIVA SUBSP. INDICA TOP [Concomitant]
     Active Substance: CANNABIS SATIVA SUBSP. INDICA TOP
     Indication: Neuropathy peripheral
     Dosage: UNK
     Route: 048
  28. VITAMIN D3 [Concomitant]
     Active Substance: CHOLECALCIFEROL
     Indication: Neuropathy peripheral
     Dosage: 4000 INTERNATIONAL UNIT
     Route: 065
  29. VITAMIN D3 [Concomitant]
     Active Substance: CHOLECALCIFEROL
     Dosage: 3000 INTERNATIONAL UNIT, QD
     Route: 065
  30. VITAMIN D3 [Concomitant]
     Active Substance: CHOLECALCIFEROL
     Dosage: 6000 INTERNATIONAL UNIT, QD
     Route: 065
  31. ALPHA LIPOIC ACID [Concomitant]
     Active Substance: .ALPHA.-LIPOIC ACID
     Indication: Guillain-Barre syndrome
     Dosage: 2 DOSAGE FORM, QD
     Route: 065
  32. ALPHA LIPOIC ACID [Concomitant]
     Active Substance: .ALPHA.-LIPOIC ACID
     Dosage: 600 MILLIGRAM
     Route: 065
  33. VITAMIN B12 [Concomitant]
     Active Substance: CYANOCOBALAMIN
     Dosage: 1000 MICROGRAM, QD
     Route: 048
  34. CANNABIS SATIVA SUBSP. INDICA TOP [Concomitant]
     Active Substance: CANNABIS SATIVA SUBSP. INDICA TOP
     Indication: Neuropathy peripheral
     Dosage: 4 DOSAGE FORM, QD
     Route: 065
  35. CANNABIS SATIVA SUBSP. INDICA TOP [Concomitant]
     Active Substance: CANNABIS SATIVA SUBSP. INDICA TOP
     Dosage: UNK
     Route: 048
  36. SOLFENACIN [Concomitant]
     Dosage: UNK
     Route: 065
  37. TYLENOL [Concomitant]
     Active Substance: ACETAMINOPHEN
     Dosage: UNK
     Route: 065
  38. CALCIUM\MAGNESIUM\ZINC [Concomitant]
     Active Substance: CALCIUM\MAGNESIUM\ZINC
     Dosage: UNK
     Route: 065
  39. VITAMIN D [Concomitant]
     Active Substance: VITAMIN D NOS
     Dosage: 4000 INTERNATIONAL UNIT
     Route: 065
  40. VITAMIN D [Concomitant]
     Active Substance: VITAMIN D NOS
     Dosage: 6000 INTERNATIONAL UNIT
     Route: 065
  41. VITAMIN B6 [Concomitant]
     Active Substance: PYRIDOXINE HYDROCHLORIDE
     Dosage: 100 MILLIGRAM
     Route: 065
  42. ASPIRIN [Concomitant]
     Active Substance: ASPIRIN
     Dosage: UNK
  43. DULOXETINE [Concomitant]
     Active Substance: DULOXETINE
     Dosage: 30 MILLIGRAM
     Route: 065
  44. VITAMIN B1 [Concomitant]
     Active Substance: THIAMINE HYDROCHLORIDE
     Dosage: 1200 MILLIGRAM
     Route: 065
  45. VITAMIN B1 [Concomitant]
     Active Substance: THIAMINE HYDROCHLORIDE
     Dosage: 600 MILLIGRAM
     Route: 065
  46. FOLIC ACID [Concomitant]
     Active Substance: FOLIC ACID
     Dosage: UNK
  47. VITAMIN C [Concomitant]
     Active Substance: ASCORBIC ACID
  48. ZINC [Concomitant]
     Active Substance: ZINC
     Dosage: UNK
     Route: 065

REACTIONS (34)
  - Sjogren^s syndrome [Unknown]
  - Chronic inflammatory demyelinating polyradiculoneuropathy [Unknown]
  - Cerebrovascular accident [Unknown]
  - Angiopathy [Unknown]
  - Serum ferritin increased [Unknown]
  - Urinary incontinence [Unknown]
  - Eye contusion [Not Recovered/Not Resolved]
  - Osmophobia [Unknown]
  - Gait inability [Unknown]
  - Poor quality sleep [Unknown]
  - Antiacetylcholine receptor antibody positive [Unknown]
  - Drug ineffective [Recovered/Resolved]
  - Drug intolerance [Unknown]
  - Motor dysfunction [Unknown]
  - Off label use [Unknown]
  - Infusion site irritation [Unknown]
  - Gastrointestinal disorder [Unknown]
  - Muscular weakness [Unknown]
  - Feeling abnormal [Unknown]
  - Balance disorder [Not Recovered/Not Resolved]
  - Pain in extremity [Unknown]
  - Back pain [Not Recovered/Not Resolved]
  - Dizziness [Unknown]
  - Migraine [Unknown]
  - Diarrhoea [Unknown]
  - Nausea [Unknown]
  - Headache [Unknown]
  - Rib fracture [Not Recovered/Not Resolved]
  - Disturbance in attention [Unknown]
  - Memory impairment [Not Recovered/Not Resolved]
  - Fall [Not Recovered/Not Resolved]
  - Eye oedema [Not Recovered/Not Resolved]
  - Contusion [Not Recovered/Not Resolved]
  - Asthenia [Not Recovered/Not Resolved]

NARRATIVE: CASE EVENT DATE: 20211018
